FAERS Safety Report 5248811-7 (Version None)
Quarter: 2007Q1

REPORT INFORMATION
  Report Type: 
  Country: None (occurrence: None)
  Receive Date: 20070228
  Receipt Date: 20060417
  Transmission Date: 20070707
  Serious: Yes (Other)
  Sender: FDA-Public Use
  Company Number: US-GLAXOSMITHKLINE-A0593993A

PATIENT
  Age: 48 Year
  Sex: Female

DRUGS (8)
  1. VALTREX [Suspect]
     Dosage: 1G TWICE PER DAY
     Route: 048
     Dates: start: 20050818
  2. PROGRAF [Concomitant]
  3. PREDNISONE [Concomitant]
  4. DAPSONE [Concomitant]
  5. AVELOX [Concomitant]
  6. COREG [Concomitant]
  7. NEURONTIN [Concomitant]
  8. VORICONAZOLE [Concomitant]

REACTIONS (1)
  - RASH [None]
